FAERS Safety Report 23933671 (Version 4)
Quarter: 2025Q4

REPORT INFORMATION
  Report Type: Report from Study
  Country: CN (occurrence: CN)
  Receive Date: 20240603
  Receipt Date: 20251015
  Transmission Date: 20260118
  Serious: Yes (Other)
  Sender: ROCHE
  Company Number: CN-ROCHE-3573424

PATIENT
  Age: 52 Year
  Sex: Male
  Weight: 54.3 kg

DRUGS (19)
  1. POLATUZUMAB VEDOTIN [Suspect]
     Active Substance: POLATUZUMAB VEDOTIN
     Indication: Diffuse large B-cell lymphoma
     Route: 042
     Dates: start: 20231104
  2. POLATUZUMAB VEDOTIN [Suspect]
     Active Substance: POLATUZUMAB VEDOTIN
     Route: 042
     Dates: start: 20240120, end: 20240120
  3. GEMCITABINE [Suspect]
     Active Substance: GEMCITABINE
     Indication: Diffuse large B-cell lymphoma
     Route: 042
     Dates: start: 20231104, end: 20231104
  4. GEMCITABINE [Suspect]
     Active Substance: GEMCITABINE
     Route: 042
     Dates: start: 20240120, end: 20240120
  5. LEUCOGEN [Suspect]
     Active Substance: LEUCOGEN
     Indication: Product used for unknown indication
     Route: 048
     Dates: start: 20231104
  6. VENETOCLAX [Suspect]
     Active Substance: VENETOCLAX
     Indication: Diffuse large B-cell lymphoma
     Dosage: START DATE: 24-NOV-2023
     Route: 048
     Dates: start: 20231104, end: 20231119
  7. VENETOCLAX [Suspect]
     Active Substance: VENETOCLAX
     Dosage: START DATE: 24-NOV-2023
     Route: 048
     Dates: start: 20240120, end: 202403
  8. OXALIPLATIN [Suspect]
     Active Substance: OXALIPLATIN
     Indication: Diffuse large B-cell lymphoma
     Route: 042
     Dates: start: 20231104, end: 20231104
  9. OXALIPLATIN [Suspect]
     Active Substance: OXALIPLATIN
     Route: 042
     Dates: start: 20240120, end: 20240120
  10. smectite powder [Concomitant]
  11. leucogen tablet [Concomitant]
  12. SPIRONOLACTONE [Concomitant]
     Active Substance: SPIRONOLACTONE
  13. Torasemide tablets [Concomitant]
  14. Pegylated recombinant human granulocyte factor [Concomitant]
  15. LIDOCAINE HYDROCHLORIDE [Concomitant]
     Active Substance: LIDOCAINE HYDROCHLORIDE
  16. CEFTAZIDIME [Concomitant]
     Active Substance: CEFTAZIDIME
  17. Promethazine needle [Concomitant]
  18. Omeprazole Enteric-coated Capsules [Concomitant]
  19. METHYLPREDNISOLONE SODIUM SUCCINATE [Concomitant]
     Active Substance: METHYLPREDNISOLONE SODIUM SUCCINATE

REACTIONS (6)
  - Pyrexia [Recovered/Resolved]
  - Diarrhoea [Recovered/Resolved]
  - Hyperuricaemia [Not Recovered/Not Resolved]
  - Renal failure [Recovered/Resolved]
  - White blood cell count decreased [Recovering/Resolving]
  - Hypoalbuminaemia [Recovering/Resolving]

NARRATIVE: CASE EVENT DATE: 20231104
